FAERS Safety Report 4711639-8 (Version None)
Quarter: 2005Q2

REPORT INFORMATION
  Report Type: 
  Country: None (occurrence: None)
  Receive Date: 20050629
  Receipt Date: 20050502
  Transmission Date: 20051028
  Serious: No
  Sender: FDA-Public Use
  Company Number: 05P-163-0299147-00

PATIENT
  Age: 73 Year
  Sex: Female

DRUGS (5)
  1. HUMIRA [Suspect]
     Indication: RHEUMATOID ARTHRITIS
     Dosage: 40 MG, 1 IN 2 WK, SUBCUTANEOUS
     Route: 058
     Dates: start: 20050314
  2. METHOTREXATE [Concomitant]
  3. HYDROCHLOROQUINE PHOSPHATE [Concomitant]
  4. ARTHROTEC [Concomitant]
  5. ATENOLOL [Concomitant]

REACTIONS (2)
  - HEADACHE [None]
  - SHOULDER PAIN [None]
